FAERS Safety Report 20975557 (Version 1)
Quarter: 2022Q2

REPORT INFORMATION
  Report Type: Spontaneous
  Country: US (occurrence: US)
  Receive Date: 20220617
  Receipt Date: 20220617
  Transmission Date: 20220721
  Serious: No
  Sender: FDA-Public Use
  Company Number: US-AMNEAL PHARMACEUTICALS-2022-AMRX-00657

PATIENT
  Sex: Female

DRUGS (1)
  1. LIDOCAINE [Suspect]
     Active Substance: LIDOCAINE
     Indication: Product used for unknown indication
     Dosage: UNK
     Route: 062

REACTIONS (5)
  - Application site pain [Unknown]
  - Pain in extremity [Unknown]
  - Arthralgia [Unknown]
  - Application site discolouration [Unknown]
  - Product adhesion issue [Unknown]
